FAERS Safety Report 5168995-9 (Version None)
Quarter: 2006Q4

REPORT INFORMATION
  Report Type: 
  Country: None (occurrence: None)
  Receive Date: 20061211
  Receipt Date: 20061205
  Transmission Date: 20070319
  Serious: Yes (Hospitalization)
  Sender: FDA-Public Use
  Company Number: FR-AVENTIS-200614273FR

PATIENT
  Age: 53 Year
  Sex: Female

DRUGS (14)
  1. METHOTREXATE BELLON [Suspect]
     Indication: RHEUMATOID ARTHRITIS
     Route: 048
     Dates: start: 19990720, end: 19991012
  2. METHOTREXATE BELLON [Suspect]
     Route: 048
     Dates: start: 19991019, end: 20000118
  3. METHOTREXATE BELLON [Suspect]
     Route: 048
     Dates: start: 20000119, end: 20041115
  4. ARAVA [Suspect]
     Indication: RHEUMATOID ARTHRITIS
     Route: 048
     Dates: start: 20040910, end: 20040912
  5. ARAVA [Suspect]
     Route: 048
     Dates: start: 20040913, end: 20041115
  6. KETOPROFEN [Suspect]
     Indication: RHEUMATOID ARTHRITIS
     Route: 048
     Dates: start: 20010921
  7. ALLOCHRYSINE                       /00499201/ [Suspect]
     Indication: RHEUMATOID ARTHRITIS
     Route: 030
     Dates: start: 20041115, end: 20060706
  8. ALLOCHRYSINE                       /00499201/ [Suspect]
     Route: 030
     Dates: start: 20060707
  9. PLAQUENIL                          /00072601/ [Suspect]
     Indication: RHEUMATOID ARTHRITIS
     Route: 048
     Dates: start: 19990415, end: 19990720
  10. PLAQUENIL                          /00072601/ [Suspect]
     Route: 048
     Dates: start: 20000418, end: 20041115
  11. MOPRAL                             /00661201/ [Suspect]
     Indication: RHEUMATOID ARTHRITIS
     Route: 048
  12. BREXIN                             /00500404/ [Concomitant]
     Indication: RHEUMATOID ARTHRITIS
     Route: 048
     Dates: end: 19990301
  13. VOLTAREN [Concomitant]
     Indication: RHEUMATOID ARTHRITIS
     Route: 048
     Dates: start: 20000418, end: 20000804
  14. CELEBREX [Concomitant]
     Indication: RHEUMATOID ARTHRITIS
     Route: 048
     Dates: start: 20010320, end: 20010921

REACTIONS (2)
  - LYMPHOCYTIC LEUKAEMIA [None]
  - LYMPHOCYTOSIS [None]
